FAERS Safety Report 4896142-7 (Version None)
Quarter: 2006Q1

REPORT INFORMATION
  Report Type: 
  Country: None (occurrence: None)
  Receive Date: 20060131
  Receipt Date: 20060120
  Transmission Date: 20060701
  Serious: Yes (Other)
  Sender: FDA-Public Use
  Company Number: ES-JNJFOC-20060104508

PATIENT
  Age: 48 Year
  Sex: Female
  Weight: 130 kg

DRUGS (1)
  1. REMICADE [Suspect]
     Route: 042

REACTIONS (3)
  - DYSPNOEA [None]
  - HYPERTONIA [None]
  - IMMOBILE [None]
